FAERS Safety Report 7328980 (Version 4)
Quarter: 2013Q1

REPORT INFORMATION
  Report Type: Spontaneous
  Country: FR (occurrence: FR)
  Receive Date: 20100323
  Receipt Date: 20130322
  Transmission Date: 20140127
  Serious: Yes (Life-Threatening, Hospitalization)
  Sender: FDA-Public Use
  Company Number: FR-BAYER-201018801GPV

PATIENT
  Age: 48 Year
  Sex: Male

DRUGS (9)
  1. CIFLOX [Suspect]
     Indication: PLEURAL DISORDER
     Dates: start: 20091225, end: 20100206
  2. CIFLOX [Suspect]
     Indication: LUNG DISORDER
  3. AUGMENTIN [Suspect]
     Indication: PLEURAL DISORDER
     Dates: start: 20091225, end: 20091230
  4. AUGMENTIN [Suspect]
     Indication: LUNG DISORDER
  5. AMIKACINE MYLAN [Suspect]
     Dates: start: 20091225, end: 20091230
  6. FORTUM [Suspect]
     Dates: start: 20091230, end: 20100119
  7. VANCOMYCIN [Suspect]
     Dates: start: 20091230, end: 20100206
  8. FLAGYL [Suspect]
     Dates: start: 20091230, end: 20100119
  9. TAZOCILLINE [Suspect]
     Dates: start: 20100119, end: 20100206

REACTIONS (11)
  - Drug reaction with eosinophilia and systemic symptoms [Recovered/Resolved]
  - Dermatitis exfoliative [Recovered/Resolved]
  - Cheilitis [Recovered/Resolved]
  - Atrophic glossitis [Recovered/Resolved]
  - Hyperthermia [Recovered/Resolved]
  - Inflammation [Recovered/Resolved]
  - Rash maculo-papular [Recovered/Resolved]
  - Face oedema [Recovered/Resolved]
  - Oedema peripheral [Recovered/Resolved]
  - Lymphadenopathy [Recovered/Resolved]
  - Skin exfoliation [Recovered/Resolved]
